FAERS Safety Report 10632387 (Version 2)
Quarter: 2014Q4

REPORT INFORMATION
  Report Type: Spontaneous
  Country: US (occurrence: US)
  Receive Date: 20141205
  Receipt Date: 20141205
  Transmission Date: 20150529
  Serious: No
  Sender: FDA-Public Use
  Company Number: US-BRISTOL-MYERS SQUIBB COMPANY-21259320

PATIENT
  Age: 53 Year
  Sex: Female

DRUGS (2)
  1. ORENCIA [Suspect]
     Active Substance: ABATACEPT
     Indication: ASTHMA
     Route: 058
     Dates: start: 201405
  2. XOLAIR [Concomitant]
     Active Substance: OMALIZUMAB

REACTIONS (2)
  - Injection site reaction [Unknown]
  - Off label use [Unknown]
